FAERS Safety Report 9167418 (Version 1)
Quarter: 2013Q1

REPORT INFORMATION
  Report Type: Spontaneous
  Country: US (occurrence: None)
  Receive Date: 20130305
  Receipt Date: 20130305
  Transmission Date: 20140127
  Serious: Yes (Disabling)
  Sender: FDA-Public Use
  Company Number: 2013P1002506

PATIENT
  Sex: 0

DRUGS (2)
  1. DEXEDRINE [Suspect]
     Indication: SOMNOLENCE
     Route: 048
     Dates: start: 2003, end: 2011
  2. GENERIC THYROID PILL [Concomitant]

REACTIONS (9)
  - Aggression [None]
  - Acne [None]
  - Rosacea [None]
  - Sleep disorder [None]
  - Overdose [None]
  - Activities of daily living impaired [None]
  - Disturbance in attention [None]
  - Insomnia [None]
  - Gastrooesophageal reflux disease [None]
